FAERS Safety Report 6596539-3 (Version None)
Quarter: 2010Q1

REPORT INFORMATION
  Report Type: 
  Country: None (occurrence: None)
  Receive Date: 20100222
  Receipt Date: 20100222
  Transmission Date: 20100710
  Serious: Yes (Hospitalization)
  Sender: FDA-Public Use
  Company Number: None

PATIENT
  Sex: Female
  Weight: 57.2 kg

DRUGS (2)
  1. ERLOTINIB 150 MG TABLETS OSI PHARMACEUTICALS [Suspect]
     Indication: BREAST CANCER
     Dosage: ERLOTINIB 150 MG DAILY 047 (PO)
     Route: 048
     Dates: start: 20090925
  2. BEVACIZUMAB [Concomitant]

REACTIONS (3)
  - ABSCESS [None]
  - CELLULITIS [None]
  - STAPHYLOCOCCAL SKIN INFECTION [None]
